FAERS Safety Report 5406066-4 (Version None)
Quarter: 2007Q3

REPORT INFORMATION
  Report Type: 
  Country: None (occurrence: None)
  Receive Date: 20070806
  Receipt Date: 20070801
  Transmission Date: 20080115
  Serious: Yes (Other)
  Sender: FDA-Public Use
  Company Number: B0482000A

PATIENT
  Age: 24 Year
  Sex: Male

DRUGS (2)
  1. ARIXTRA [Suspect]
     Route: 058
     Dates: start: 20070603, end: 20070614
  2. KETOPROFEN [Suspect]
     Route: 048
     Dates: start: 20070610, end: 20070614

REACTIONS (2)
  - GASTROINTESTINAL HAEMORRHAGE [None]
  - MELAENA [None]
